FAERS Safety Report 20922569 (Version 1)
Quarter: 2022Q2

REPORT INFORMATION
  Report Type: Spontaneous
  Country: GB (occurrence: None)
  Receive Date: 20220607
  Receipt Date: 20220607
  Transmission Date: 20220720
  Serious: Yes (Disabling)
  Sender: FDA-Public Use
  Company Number: None

PATIENT
  Sex: Female
  Weight: 60.7 kg

DRUGS (8)
  1. MYCOPHENOLATE MOFETIL [Suspect]
     Active Substance: MYCOPHENOLATE MOFETIL
     Indication: Product used for unknown indication
     Route: 048
     Dates: start: 20190202, end: 20211028
  2. CALCIUM CARBONATE\CHOLECALCIFEROL [Concomitant]
     Active Substance: CALCIUM CARBONATE\CHOLECALCIFEROL
     Dates: start: 20210820
  3. FERROUS FUMARATE [Concomitant]
     Active Substance: FERROUS FUMARATE
     Dates: start: 20210906
  4. FLUCONAZOLE [Concomitant]
     Active Substance: FLUCONAZOLE
     Dates: start: 20211022
  5. FOLIC ACID [Concomitant]
     Active Substance: FOLIC ACID
     Dates: start: 20210906
  6. LACTULOSE [Concomitant]
     Active Substance: LACTULOSE
     Indication: Constipation
     Dates: start: 20211007
  7. NORIDAY (UNITED KINGDOM) [Concomitant]
     Dates: start: 20211021
  8. NYSTATIN [Concomitant]
     Active Substance: NYSTATIN
     Dosage: 100,000IU/ML IT IS RECOMMENDED TO KEEP THE MEDICATION IN CONTACT WITH THE AFFECTED AREAS AS
     Dates: start: 20211022

REACTIONS (4)
  - Toothache [Recovered/Resolved]
  - Ear pain [Unknown]
  - Headache [Unknown]
  - Gingivitis [Unknown]

NARRATIVE: CASE EVENT DATE: 20210722
